FAERS Safety Report 23735328 (Version 1)
Quarter: 2024Q2

REPORT INFORMATION
  Report Type: Report from Study
  Country: US (occurrence: None)
  Receive Date: 20240412
  Receipt Date: 20240412
  Transmission Date: 20240717
  Serious: Yes (Other)
  Sender: FDA-Public Use
  Company Number: 2024A084641

PATIENT
  Sex: Female
  Weight: 54.4 kg

DRUGS (2)
  1. LYNPARZA [Suspect]
     Active Substance: OLAPARIB
     Indication: Malignant peritoneal neoplasm
     Route: 048
     Dates: start: 20230313
  2. LYNPARZA [Suspect]
     Active Substance: OLAPARIB
     Indication: Large intestine benign neoplasm
     Route: 048
     Dates: start: 20230313

REACTIONS (1)
  - Breast mass [Unknown]
